FAERS Safety Report 5123623-3 (Version None)
Quarter: 2006Q4

REPORT INFORMATION
  Report Type: 
  Country: None (occurrence: None)
  Receive Date: 20060910
  Receipt Date: 20060504
  Transmission Date: 20070319
  Serious: Yes (Other)
  Sender: FDA-Public Use
  Company Number: US200605001277

PATIENT
  Sex: Female

DRUGS (3)
  1. HUMULIN N [Suspect]
     Dates: start: 20000101, end: 20010101
  2. ILETIN [Suspect]
     Dosage: SEE IMAGE
     Dates: start: 20010101
  3. ILETIN [Suspect]
     Dates: start: 19560101

REACTIONS (5)
  - BLOOD GLUCOSE DECREASED [None]
  - HEART RATE INCREASED [None]
  - HYPERHIDROSIS [None]
  - HYPOGLYCAEMIA UNAWARENESS [None]
  - LOSS OF CONSCIOUSNESS [None]
